FAERS Safety Report 19916094 (Version 1)
Quarter: 2021Q4

REPORT INFORMATION
  Report Type: Spontaneous
  Country: US (occurrence: US)
  Receive Date: 20211004
  Receipt Date: 20211004
  Transmission Date: 20220303
  Serious: Yes (Hospitalization)
  Sender: FDA-Public Use
  Company Number: None

PATIENT
  Age: 78 Year
  Sex: Male
  Weight: 71.2 kg

DRUGS (1)
  1. BREXUCABTAGENE AUTOLEUCEL [Suspect]
     Active Substance: BREXUCABTAGENE AUTOLEUCEL
     Dosage: ?          OTHER FREQUENCY:ONCE;
     Route: 042
     Dates: start: 20210823, end: 20210823

REACTIONS (5)
  - Cytokine release syndrome [None]
  - Pyrexia [None]
  - Hypotension [None]
  - Hypoxia [None]
  - Platelet count decreased [None]

NARRATIVE: CASE EVENT DATE: 20210824
